FAERS Safety Report 14088936 (Version 4)
Quarter: 2017Q4

REPORT INFORMATION
  Report Type: Spontaneous
  Country: US (occurrence: US)
  Receive Date: 20171014
  Receipt Date: 20171114
  Transmission Date: 20180321
  Serious: No
  Sender: FDA-Public Use
  Company Number: PHEH2017US031712

PATIENT

DRUGS (1)
  1. TETRACAINE. [Suspect]
     Active Substance: TETRACAINE
     Indication: INTRAOPERATIVE CARE
     Route: 047

REACTIONS (1)
  - Drug ineffective [Unknown]
